FAERS Safety Report 6396008-X (Version None)
Quarter: 2009Q4

REPORT INFORMATION
  Report Type: 
  Country: None (occurrence: None)
  Receive Date: 20091009
  Receipt Date: 20091001
  Transmission Date: 20100525
  Serious: Yes (Other)
  Sender: FDA-Public Use
  Company Number: TR-GILEAD-2009-0024580

PATIENT
  Age: 49 Year
  Sex: Male

DRUGS (2)
  1. VIREAD [Suspect]
     Indication: HEPATITIS B
     Route: 048
     Dates: start: 20090501, end: 20091001
  2. ZEFFIX [Concomitant]
     Route: 048

REACTIONS (2)
  - MYOPATHY [None]
  - NEPHROPATHY [None]
